FAERS Safety Report 18732066 (Version 3)
Quarter: 2021Q1

REPORT INFORMATION
  Report Type: Spontaneous
  Country: ES (occurrence: ES)
  Receive Date: 20210112
  Receipt Date: 20210312
  Transmission Date: 20210419
  Serious: Yes (Life-Threatening, Hospitalization)
  Sender: FDA-Public Use
  Company Number: ES-PFIZER INC-2021016272

PATIENT
  Age: 75 Year
  Sex: Female

DRUGS (9)
  1. ALPRAZOLAM. [Suspect]
     Active Substance: ALPRAZOLAM
     Indication: INSOMNIA
     Dosage: 0.5 MG, 3X/DAY, 0.5MG EVERY 8 HOURS
     Route: 048
     Dates: start: 20190828, end: 20191204
  2. FLUOXETINA [FLUOXETINE] [Concomitant]
     Active Substance: FLUOXETINE HYDROCHLORIDE
     Dosage: 20 MG, 1X/DAY, 20MG EVERY 24 HOURS
     Dates: end: 20191209
  3. EMCONCOR [Concomitant]
     Active Substance: BISOPROLOL FUMARATE
     Dosage: 1 UNK, 2X/DAY, 1 TABLET EVERY 12 HOUR
     Dates: end: 20191204
  4. SINTROM [Concomitant]
     Active Substance: ACENOCOUMAROL
     Dosage: UNK, IRREGULAR ACCORDING TO THE SCHEME
  5. CROMATONBIC B12 [Concomitant]
     Dosage: UNK, MONTHLY, 1 FOR MONTH
  6. JANUMET [Concomitant]
     Active Substance: METFORMIN HYDROCHLORIDE\SITAGLIPTIN PHOSPHATE
     Indication: DIABETES MELLITUS
     Dosage: 1 UNK, 2X/DAY, 1 TABLET EVERY 12 HOURS
     Dates: start: 20101203
  7. NOVOMIX [Concomitant]
     Active Substance: INSULIN ASPART
     Dosage: 56 IU, DAILY
  8. PREGABALIN. [Concomitant]
     Active Substance: PREGABALIN
     Dosage: 2X/DAY, EVERY 12 HOURS
     Dates: end: 20191209
  9. ZALDIAR [Concomitant]
     Active Substance: ACETAMINOPHEN\TRAMADOL HYDROCHLORIDE
     Dosage: , 3X/DAY, ONE TABLET EVERY 8 HOURS

REACTIONS (2)
  - Off label use [Unknown]
  - Altered state of consciousness [Recovered/Resolved]

NARRATIVE: CASE EVENT DATE: 20190828
